FAERS Safety Report 7464477-X (Version None)
Quarter: 2011Q2

REPORT INFORMATION
  Report Type: 
  Country: None (occurrence: None)
  Receive Date: 20110509
  Receipt Date: 20110425
  Transmission Date: 20111010
  Serious: Yes (Other)
  Sender: FDA-Public Use
  Company Number: JP-JNJFOC-20110500630

PATIENT
  Age: 40 Year
  Sex: Male

DRUGS (5)
  1. TOPIRAMATE [Suspect]
     Indication: EPILEPSY
     Route: 048
  2. MAGNESIUM OXIDE [Concomitant]
     Route: 065
  3. TOPIRAMATE [Suspect]
     Route: 048
  4. DEPAKENE [Concomitant]
     Route: 065
  5. GABAPEN [Concomitant]
     Route: 065

REACTIONS (1)
  - EPILEPSY [None]
